FAERS Safety Report 6734773-X (Version None)
Quarter: 2010Q2

REPORT INFORMATION
  Report Type: 
  Country: None (occurrence: None)
  Receive Date: 20100521
  Receipt Date: 20100512
  Transmission Date: 20101027
  Serious: Yes (Hospitalization, Other)
  Sender: FDA-Public Use
  Company Number: US-BIOGENIDEC-2010BI009545

PATIENT
  Age: 47 Year
  Sex: Female

DRUGS (16)
  1. TYSABRI [Suspect]
     Indication: MULTIPLE SCLEROSIS
     Route: 042
     Dates: start: 20070228, end: 20100226
  2. LANTUS [Concomitant]
     Indication: TYPE 1 DIABETES MELLITUS
     Route: 058
  3. ASPIRIN [Concomitant]
     Indication: CORONARY ARTERY DISEASE
  4. VICODIN [Concomitant]
  5. PLAVIX [Concomitant]
     Indication: STENT PLACEMENT
  6. DIOVAN [Concomitant]
     Indication: HYPERTENSION
  7. HYDROCHLOROTHIAZIDE [Concomitant]
     Indication: HYPERTENSION
  8. LORAZEPAM [Concomitant]
  9. FLUOXETINE [Concomitant]
     Indication: DEPRESSION
  10. LEXAPRO [Concomitant]
     Indication: DEPRESSION
  11. PEPCID [Concomitant]
     Indication: GASTROOESOPHAGEAL REFLUX DISEASE
  12. VITAMIN D [Concomitant]
  13. COMBIVENT [Concomitant]
     Route: 055
  14. TUMS [Concomitant]
  15. ADDERALL 30 [Concomitant]
  16. AMITRIPTLINE HYDROCHLORIDE TAB [Concomitant]

REACTIONS (8)
  - ABDOMINAL COMPARTMENT SYNDROME [None]
  - ABDOMINAL STRANGULATED HERNIA [None]
  - ACUTE RESPIRATORY DISTRESS SYNDROME [None]
  - ARTERIAL STENT INSERTION [None]
  - FALL [None]
  - MYELITIS TRANSVERSE [None]
  - SEDATION [None]
  - SEPTIC SHOCK [None]
